FAERS Safety Report 21868159 (Version 3)
Quarter: 2023Q4

REPORT INFORMATION
  Report Type: Report from Study
  Country: US (occurrence: US)
  Receive Date: 20230116
  Receipt Date: 20231108
  Transmission Date: 20240110
  Serious: Yes (Other)
  Sender: FDA-Public Use
  Company Number: US-ABBVIE-4271580

PATIENT
  Sex: Male

DRUGS (2)
  1. VENCLEXTA [Suspect]
     Active Substance: VENETOCLAX
     Indication: Chronic lymphocytic leukaemia
     Route: 048
     Dates: start: 20210531
  2. VENCLEXTA [Suspect]
     Active Substance: VENETOCLAX
     Indication: Chronic lymphocytic leukaemia
     Dosage: TIME INTERVAL: 0.33333333 DAYS
     Route: 048

REACTIONS (12)
  - Eye injury [Unknown]
  - Fall [Unknown]
  - Alopecia [Not Recovered/Not Resolved]
  - Adverse drug reaction [Unknown]
  - Depressed mood [Unknown]
  - Blood glucose increased [Unknown]
  - Sleep disorder [Unknown]
  - Unevaluable event [Unknown]
  - General physical health deterioration [Unknown]
  - Peroneal nerve injury [Unknown]
  - Psychiatric symptom [Unknown]
  - Arthralgia [Unknown]

NARRATIVE: CASE EVENT DATE: 20230101
